FAERS Safety Report 22228966 (Version 1)
Quarter: 2023Q2

REPORT INFORMATION
  Report Type: Spontaneous
  Country: US (occurrence: US)
  Receive Date: 20230419
  Receipt Date: 20230419
  Transmission Date: 20230722
  Serious: No
  Sender: FDA-Public Use
  Company Number: US-BRISTOL-MYERS SQUIBB COMPANY-2023-054300

PATIENT
  Age: 85 Year
  Sex: Female
  Weight: 63.5 kg

DRUGS (2)
  1. ELIQUIS [Suspect]
     Active Substance: APIXABAN
     Indication: Supraventricular tachycardia
     Route: 048
     Dates: start: 2013
  2. DILTIAZEM [Concomitant]
     Active Substance: DILTIAZEM
     Indication: Product used for unknown indication

REACTIONS (3)
  - Arthritis [Unknown]
  - Arthralgia [Unknown]
  - Off label use [Unknown]
